FAERS Safety Report 16775262 (Version 1)
Quarter: 2019Q3

REPORT INFORMATION
  Report Type: Spontaneous
  Country: US (occurrence: US)
  Receive Date: 20190905
  Receipt Date: 20190905
  Transmission Date: 20191005
  Serious: Yes (Other)
  Sender: FDA-Public Use
  Company Number: US-TEVA-2019-US-1102987

PATIENT
  Age: 50 Year
  Sex: Female

DRUGS (1)
  1. ARMODAFINIL 150 MG TABLETS [Suspect]
     Active Substance: ARMODAFINIL

REACTIONS (3)
  - Hypersensitivity [Unknown]
  - Throat tightness [Unknown]
  - Stomatitis [Unknown]
